FAERS Safety Report 4328281-3 (Version None)
Quarter: 2004Q1

REPORT INFORMATION
  Report Type: 
  Country: None (occurrence: None)
  Receive Date: 20040325
  Receipt Date: 20040212
  Transmission Date: 20041129
  Serious: No
  Sender: FDA-Public Use
  Company Number: KII-2004-0007868

PATIENT
  Age: 39 Year
  Sex: Female

DRUGS (2)
  1. SPECTRACEF TABLETS 200MG (CEFDITOREN PIVOXIL) [Suspect]
     Indication: SINUSITIS
     Dosage: 200 MG, BID
     Dates: start: 20040101
  2. NASACORT [Concomitant]

REACTIONS (2)
  - DIARRHOEA [None]
  - VAGINITIS [None]
